FAERS Safety Report 10236222 (Version 1)
Quarter: 2014Q1

REPORT INFORMATION
  Report Type: Spontaneous
  Country: US (occurrence: None)
  Receive Date: 20140306
  Receipt Date: 20140306
  Transmission Date: 20141002
  Serious: Yes (Other)
  Sender: FDA-Public Use
  Company Number: 163-21880-13031006

PATIENT
  Age: 57 Year
  Sex: Female
  Weight: 67.59 kg

DRUGS (4)
  1. REVLIMID [Suspect]
     Indication: MYELODYSPLASTIC SYNDROME
     Route: 048
     Dates: start: 20060401
  2. ADULT LOW DOSE ASPIRIN (ACETYLSALICYLIC ACID) (UNKNOWN) [Concomitant]
  3. TEMAZEPAM (TEMAZEPAM) [Concomitant]
  4. URELLE (URELLE) (TABLETS) [Concomitant]

REACTIONS (1)
  - Vitamin D decreased [None]
